FAERS Safety Report 8586089-7 (Version None)
Quarter: 2012Q3

REPORT INFORMATION
  Report Type: 
  Country: None (occurrence: None)
  Receive Date: 20120730
  Receipt Date: 20120716
  Transmission Date: 20120928
  Serious: Yes (Hospitalization)
  Sender: FDA-Public Use
  Company Number: E2B_7140079

PATIENT
  Age: 60 Year
  Sex: Male

DRUGS (2)
  1. CENTYL MED KALIUMKLORID (SALURES-K) [Concomitant]
  2. LEVOTHYROXINE SODIUM [Suspect]
     Indication: PRODUCT USED FOR UNKNOWN INDICATION
     Dosage: 100 MCG (100 MCG, 1 IN 1 D)
     Dates: start: 20101010, end: 20120315

REACTIONS (4)
  - ANGINA PECTORIS [None]
  - HYPERTENSION [None]
  - HEADACHE [None]
  - TINNITUS [None]
